FAERS Safety Report 7395555-1 (Version None)
Quarter: 2011Q2

REPORT INFORMATION
  Report Type: 
  Country: None (occurrence: None)
  Receive Date: 20110405
  Receipt Date: 20110323
  Transmission Date: 20111010
  Serious: Yes (Hospitalization)
  Sender: FDA-Public Use
  Company Number: PHHY2011CH19826

PATIENT
  Age: 69 Year
  Sex: Male

DRUGS (14)
  1. SIMCORA [Suspect]
     Dosage: 40 MG, UNK
     Route: 048
     Dates: start: 20110101, end: 20110211
  2. SANDIMMUNE [Suspect]
     Indication: STEM CELL TRANSPLANT
     Dosage: 200 MG, UNK
     Route: 048
     Dates: start: 20101208, end: 20110213
  3. AMLODIPINE [Concomitant]
  4. LEUCOVORIN [Concomitant]
  5. IDARUBICIN HCL [Concomitant]
  6. SIMCORA [Suspect]
     Dosage: UNK
     Dates: end: 20100601
  7. URSO FALK [Concomitant]
  8. VFEND [Concomitant]
     Dosage: UNK
     Dates: start: 20100601, end: 20110211
  9. VALTREX [Concomitant]
     Dosage: UNK
     Dates: start: 20100601, end: 20110211
  10. CELLCEPT [Concomitant]
     Dosage: UNK
     Dates: end: 20101208
  11. CYTARABINE [Concomitant]
     Indication: ACUTE MYELOID LEUKAEMIA
     Dosage: UNK
  12. CIPROFLOXACIN [Concomitant]
  13. NEXIUM [Concomitant]
  14. ASPRO CARDIO [Concomitant]
     Dosage: 100 MG, UNK
     Dates: start: 20110101

REACTIONS (8)
  - BLOOD CREATINE PHOSPHOKINASE INCREASED [None]
  - MYALGIA [None]
  - RHABDOMYOLYSIS [None]
  - ASTHENIA [None]
  - HEPATITIS [None]
  - HEPATIC ENZYME INCREASED [None]
  - DECREASED APPETITE [None]
  - NAUSEA [None]
